FAERS Safety Report 5863373-9 (Version None)
Quarter: 2008Q3

REPORT INFORMATION
  Report Type: 
  Country: None (occurrence: None)
  Receive Date: 20080828
  Receipt Date: 20080820
  Transmission Date: 20090109
  Serious: Yes (Other)
  Sender: FDA-Public Use
  Company Number: PHEH2008US07548

PATIENT
  Sex: Male

DRUGS (4)
  1. FAMVIR [Suspect]
     Dosage: 250 MG, BID
     Route: 048
     Dates: start: 20070701
  2. FISH OIL [Suspect]
  3. AVANDIA [Concomitant]
     Dosage: 2 MG, BID
     Route: 048
     Dates: start: 20070401
  4. BACLOFEN [Concomitant]
     Dosage: 10 MG, TID
     Route: 048
     Dates: start: 20070901

REACTIONS (2)
  - CARDIAC DISORDER [None]
  - TONGUE DISCOLOURATION [None]
